FAERS Safety Report 9984205 (Version 2)
Quarter: 2014Q1

REPORT INFORMATION
  Report Type: Spontaneous
  Country: US (occurrence: US)
  Receive Date: 20140307
  Receipt Date: 20140307
  Transmission Date: 20141002
  Serious: Yes (Other)
  Sender: FDA-Public Use
  Company Number: US-ABBVIE-13P-163-1180459-00

PATIENT
  Age: 43 Year
  Sex: Male

DRUGS (2)
  1. HUMIRA [Suspect]
     Indication: PSORIASIS
     Dates: end: 201211
  2. HUMIRA [Suspect]
     Dates: start: 201211

REACTIONS (2)
  - Hepatic cancer [Unknown]
  - Drug effect decreased [Recovered/Resolved]
